FAERS Safety Report 7156914-5 (Version None)
Quarter: 2010Q4

REPORT INFORMATION
  Report Type: 
  Country: None (occurrence: None)
  Receive Date: 20101214
  Receipt Date: 20101202
  Transmission Date: 20110411
  Serious: Yes (Hospitalization, Other)
  Sender: FDA-Public Use
  Company Number: PHHY2010NL53405

PATIENT
  Sex: Male

DRUGS (8)
  1. ZOMETA [Suspect]
     Indication: METASTASES TO BONE
     Dosage: 4MG/5ML
     Dates: start: 20100325
  2. ZOMETA [Suspect]
     Indication: PROSTATE CANCER METASTATIC
     Dosage: 4MG/5ML
     Dates: start: 20100715
  3. ZOMETA [Suspect]
     Dosage: 4MG/5ML
     Dates: start: 20100812
  4. ZOMETA [Suspect]
     Dosage: 4MG/5ML
     Dates: start: 20101104
  5. ZOMETA [Suspect]
     Dosage: 4MG/5ML
     Dates: start: 20101202
  6. ASCAL [Concomitant]
     Dosage: UNK
  7. LIPITOR [Concomitant]
     Dosage: UNK
  8. TAMSULOSIN [Concomitant]

REACTIONS (8)
  - DECREASED APPETITE [None]
  - DIZZINESS [None]
  - FATIGUE [None]
  - HYPOTENSION [None]
  - NEPHROSTOMY TUBE PLACEMENT [None]
  - PAIN [None]
  - RENAL IMPAIRMENT [None]
  - URINARY TRACT INFECTION [None]
